FAERS Safety Report 6691738-4 (Version None)
Quarter: 2010Q2

REPORT INFORMATION
  Report Type: 
  Country: None (occurrence: None)
  Receive Date: 20100422
  Receipt Date: 20090923
  Transmission Date: 20101027
  Serious: Yes (Hospitalization)
  Sender: FDA-Public Use
  Company Number: US-ASTRAZENECA-2009SE15161

PATIENT
  Age: 75 Year
  Sex: Male
  Weight: 65.8 kg

DRUGS (5)
  1. TOPROL-XL [Suspect]
     Indication: HYPERTENSION
     Route: 048
     Dates: start: 20070101
  2. ZOCOR [Concomitant]
     Indication: BLOOD CHOLESTEROL INCREASED
     Route: 048
  3. PROTONIX [Concomitant]
  4. FLOMAX [Concomitant]
  5. PROSCAR [Concomitant]

REACTIONS (3)
  - BRADYCARDIA [None]
  - SYNCOPE [None]
  - WEIGHT INCREASED [None]
